FAERS Safety Report 11604142 (Version 1)
Quarter: 2015Q4

REPORT INFORMATION
  Report Type: Spontaneous
  Country: US (occurrence: None)
  Receive Date: 20151006
  Receipt Date: 20151006
  Transmission Date: 20160304
  Serious: Yes (Disabling, Other)
  Sender: FDA-Public Use
  Company Number: None

PATIENT
  Age: 57 Year
  Sex: Female
  Weight: 47.63 kg

DRUGS (11)
  1. ESTRODID PATCH [Concomitant]
  2. PRILOSEC [Concomitant]
     Active Substance: OMEPRAZOLE MAGNESIUM
  3. MELOTONTIN [Concomitant]
  4. MORPHINE SULFATE EXTENDED-RELEASE [Concomitant]
     Active Substance: MORPHINE SULFATE
  5. DIAZEPAM. [Concomitant]
     Active Substance: DIAZEPAM
  6. GCHED MULTI VIT [Concomitant]
  7. KENALOG [Suspect]
     Active Substance: TRIAMCINOLONE ACETONIDE
     Indication: ACNE
     Route: 042
     Dates: start: 20150903, end: 20150903
  8. FLEXERIL [Concomitant]
     Active Substance: CYCLOBENZAPRINE HYDROCHLORIDE
  9. VIT OMEGA 3 [Concomitant]
  10. VITAMIN D [Concomitant]
     Active Substance: CHOLECALCIFEROL
  11. MACHA [Concomitant]

REACTIONS (14)
  - Abdominal pain upper [None]
  - Headache [None]
  - Injection site pain [None]
  - Night sweats [None]
  - Insomnia [None]
  - Depression [None]
  - Postmenopausal haemorrhage [None]
  - Feeling abnormal [None]
  - Affective disorder [None]
  - Myalgia [None]
  - Back pain [None]
  - Hypertension [None]
  - Anxiety [None]
  - Vertigo [None]

NARRATIVE: CASE EVENT DATE: 20150903
